FAERS Safety Report 7419749-1 (Version None)
Quarter: 2011Q2

REPORT INFORMATION
  Report Type: 
  Country: None (occurrence: None)
  Receive Date: 20110418
  Receipt Date: 20110408
  Transmission Date: 20111010
  Serious: Yes (Other)
  Sender: FDA-Public Use
  Company Number: JP-ASTELLAS-2011JP002565

PATIENT
  Age: 81 Year
  Sex: Female

DRUGS (4)
  1. LOXONIN [Concomitant]
     Dosage: UNK
     Route: 048
     Dates: end: 20110329
  2. VESICARE [Suspect]
     Indication: HYPERTONIC BLADDER
     Dosage: 5 MG, UNKNOWN/D
     Route: 048
     Dates: end: 20110329
  3. IPD [Concomitant]
     Dosage: UNK
     Route: 048
     Dates: end: 20110329
  4. MUCOSTA [Concomitant]
     Dosage: UNK
     Route: 048
     Dates: end: 20110329

REACTIONS (1)
  - BONE MARROW FAILURE [None]
